FAERS Safety Report 6112725-0 (Version None)
Quarter: 2009Q1

REPORT INFORMATION
  Report Type: 
  Country: None (occurrence: None)
  Receive Date: 20090312
  Receipt Date: 20090310
  Transmission Date: 20090719
  Serious: Yes (Hospitalization)
  Sender: FDA-Public Use
  Company Number: AU-WYE-G03286509

PATIENT
  Age: 69 Year
  Sex: Female

DRUGS (2)
  1. PRISTIQ [Suspect]
     Indication: DEPRESSION
     Dosage: SLOWLY INCREASING THE DOSAGE OVER THE PAST FEW WEEKS TO A LEVEL OF NOW 150MG PER DAY
     Dates: start: 20090101
  2. WARFARIN SODIUM [Concomitant]

REACTIONS (2)
  - CONFUSIONAL STATE [None]
  - VISION BLURRED [None]
